FAERS Safety Report 12762779 (Version 2)
Quarter: 2016Q4

REPORT INFORMATION
  Report Type: Report from Study
  Country: None (occurrence: BR)
  Receive Date: 20160920
  Receipt Date: 20161006
  Transmission Date: 20170207
  Serious: Yes (Death, Hospitalization, Other)
  Sender: FDA-Public Use
  Company Number: BR-ABBVIE-16K-020-1730284-00

PATIENT
  Age: 71 Year
  Sex: Female
  Weight: 58 kg

DRUGS (5)
  1. METHOTREXATE. [Concomitant]
     Active Substance: METHOTREXATE
     Indication: RHEUMATOID ARTHRITIS
     Dates: start: 1997
  2. PREDSIM [Concomitant]
     Active Substance: PREDNISOLONE
     Indication: PRODUCT USED FOR UNKNOWN INDICATION
  3. HUMIRA [Suspect]
     Active Substance: ADALIMUMAB
     Indication: RHEUMATOID ARTHRITIS
     Route: 058
     Dates: start: 20150701, end: 201605
  4. CONCOR [Concomitant]
     Active Substance: BISOPROLOL FUMARATE
     Indication: CARDIAC DISORDER
  5. PREDNISOLONE. [Concomitant]
     Active Substance: PREDNISOLONE
     Indication: RHEUMATOID ARTHRITIS

REACTIONS (15)
  - Sepsis [Fatal]
  - Immunodeficiency [Unknown]
  - Influenza [Unknown]
  - Death [Fatal]
  - Acute kidney injury [Fatal]
  - Septic shock [Fatal]
  - Rheumatoid arthritis [Fatal]
  - Hospitalisation [Unknown]
  - White blood cell count abnormal [Unknown]
  - Chronic obstructive pulmonary disease [Fatal]
  - Congestive cardiomyopathy [Fatal]
  - Fatigue [Unknown]
  - Pneumonia [Fatal]
  - Pulmonary sepsis [Fatal]
  - Medical induction of coma [Unknown]

NARRATIVE: CASE EVENT DATE: 201605
